FAERS Safety Report 17132467 (Version 2)
Quarter: 2019Q4

REPORT INFORMATION
  Report Type: Report from Study
  Country: None (occurrence: CA)
  Receive Date: 20191210
  Receipt Date: 20191211
  Transmission Date: 20200122
  Serious: Yes (Hospitalization)
  Sender: FDA-Public Use
  Company Number: CA-ABBVIE-19K-028-2993005-00

PATIENT
  Age: 37 Year
  Sex: Male

DRUGS (1)
  1. HUMIRA [Suspect]
     Active Substance: ADALIMUMAB
     Indication: CROHN^S DISEASE
     Route: 058
     Dates: start: 20180130, end: 20191022

REACTIONS (2)
  - Perforated ulcer [Recovered/Resolved]
  - Vocal cord paralysis [Recovered/Resolved]

NARRATIVE: CASE EVENT DATE: 201910
